FAERS Safety Report 8272638-5 (Version None)
Quarter: 2012Q2

REPORT INFORMATION
  Report Type: 
  Country: None (occurrence: None)
  Receive Date: 20120410
  Receipt Date: 20120330
  Transmission Date: 20120825
  Serious: Yes (Hospitalization)
  Sender: FDA-Public Use
  Company Number: KR-ELI_LILLY_AND_COMPANY-KR201204000376

PATIENT
  Age: 76 Year
  Sex: Female

DRUGS (2)
  1. HUMALOG MIX 50/50 [Suspect]
     Indication: TYPE 2 DIABETES MELLITUS
     Dosage: 18 U, EACH MORNING
     Route: 058
     Dates: start: 20111201
  2. HUMALOG MIX 50/50 [Suspect]
     Dosage: 12 U, EACH EVENING
     Route: 058
     Dates: start: 20111201

REACTIONS (3)
  - HYPERTENSION [None]
  - ASTHENIA [None]
  - SYNCOPE [None]
